FAERS Safety Report 17584762 (Version 1)
Quarter: 2020Q1

REPORT INFORMATION
  Report Type: Spontaneous
  Country: US (occurrence: US)
  Receive Date: 20200324
  Receipt Date: 20200324
  Transmission Date: 20200409
  Serious: Yes (Hospitalization)
  Sender: FDA-Public Use
  Company Number: None

PATIENT
  Age: 61 Year
  Sex: Male
  Weight: 84.5 kg

DRUGS (3)
  1. DEXAMETHASONE. [Suspect]
     Active Substance: DEXAMETHASONE
     Dates: end: 20161028
  2. LENALIDOMIDE (CC-5013) [Suspect]
     Active Substance: LENALIDOMIDE
     Dates: end: 20161028
  3. VELCADE [Concomitant]
     Active Substance: BORTEZOMIB
     Dates: end: 20161028

REACTIONS (1)
  - Blood sodium decreased [None]

NARRATIVE: CASE EVENT DATE: 20161028
